FAERS Safety Report 6996503-6 (Version None)
Quarter: 2010Q3

REPORT INFORMATION
  Report Type: 
  Country: None (occurrence: None)
  Receive Date: 20100918
  Receipt Date: 20090317
  Transmission Date: 20110219
  Serious: Yes (Other)
  Sender: FDA-Public Use
  Company Number: US-WYE-H08627809

PATIENT
  Sex: Female
  Weight: 118.04 kg

DRUGS (6)
  1. EFFEXOR XR [Suspect]
     Indication: ANXIETY
     Route: 048
     Dates: start: 20010101
  2. EFFEXOR XR [Suspect]
     Indication: DEPRESSION
  3. FIBERCON [Concomitant]
  4. ZYRTEC-D 12 HOUR [Concomitant]
  5. HYDROXYZINE [Concomitant]
  6. GEODON [Concomitant]

REACTIONS (3)
  - ABDOMINAL PAIN [None]
  - ALANINE AMINOTRANSFERASE INCREASED [None]
  - ASPARTATE AMINOTRANSFERASE INCREASED [None]
